FAERS Safety Report 8999903 (Version 2)
Quarter: 2013Q1

REPORT INFORMATION
  Report Type: Spontaneous
  Country: US (occurrence: US)
  Receive Date: 20130102
  Receipt Date: 20130110
  Transmission Date: 20140127
  Serious: No
  Sender: FDA-Public Use
  Company Number: US-VERTEX PHARMACEUTICALS INC.-2012-026769

PATIENT
  Age: 56 Year
  Sex: Male
  Weight: 83 kg

DRUGS (4)
  1. INCIVEK [Suspect]
     Indication: HEPATITIS C
     Dosage: 750 MG, TID
     Route: 048
     Dates: start: 20121226, end: 20130108
  2. RIBAVIRIN [Suspect]
     Indication: HEPATITIS C
     Dosage: 600 MG, BID
     Route: 048
     Dates: start: 20121226, end: 20130106
  3. PEGASYS [Suspect]
     Indication: HEPATITIS C
     Dosage: 180 ?G,QW
     Route: 058
     Dates: start: 20121226, end: 20130102
  4. SYNTHROID [Concomitant]
     Indication: HYPOTHYROIDISM

REACTIONS (10)
  - Arthralgia [Not Recovered/Not Resolved]
  - Weight decreased [Not Recovered/Not Resolved]
  - Fatigue [Not Recovered/Not Resolved]
  - Rash pruritic [Not Recovered/Not Resolved]
  - Haemorrhoids [Recovered/Resolved]
  - Proctalgia [Recovered/Resolved]
  - Anorectal discomfort [Recovered/Resolved]
  - Anal pruritus [Recovered/Resolved]
  - Vomiting [Recovered/Resolved]
  - Nausea [Recovered/Resolved]
